FAERS Safety Report 7705809-4 (Version None)
Quarter: 2011Q3

REPORT INFORMATION
  Report Type: 
  Country: None (occurrence: None)
  Receive Date: 20110824
  Receipt Date: 20110810
  Transmission Date: 20111222
  Serious: Yes (Death, Other)
  Sender: FDA-Public Use
  Company Number: JP-UCBSA-030303

PATIENT
  Age: 63 Year
  Sex: Male

DRUGS (6)
  1. ZYRTEC [Concomitant]
     Indication: HYPERSENSITIVITY
     Dates: end: 20110311
  2. XYZAL [Suspect]
     Indication: PRURITUS
     Route: 048
     Dates: start: 20110311, end: 20110327
  3. ADALAT [Concomitant]
     Indication: HYPERTENSION
     Route: 048
     Dates: end: 20110327
  4. BISOPROLOL FUMARATE [Concomitant]
     Indication: HYPERTENSION
     Route: 048
     Dates: end: 20110327
  5. EQUA [Concomitant]
     Indication: DIABETES MELLITUS
     Route: 048
     Dates: end: 20110327
  6. OLMESARTAN MEDOXOMIL [Concomitant]
     Indication: HYPERTENSION
     Route: 048
     Dates: end: 20110327

REACTIONS (4)
  - DEATH [None]
  - NEUTROPENIA [None]
  - WHITE BLOOD CELL COUNT DECREASED [None]
  - SEPSIS [None]
